FAERS Safety Report 18346675 (Version 5)
Quarter: 2021Q2

REPORT INFORMATION
  Report Type: Spontaneous
  Country: US (occurrence: US)
  Receive Date: 20201006
  Receipt Date: 20210629
  Transmission Date: 20210717
  Serious: Yes (Other)
  Sender: FDA-Public Use
  Company Number: US-GLAXOSMITHKLINE-US2020197270

PATIENT
  Sex: Female

DRUGS (7)
  1. ALBUTEROL. [Suspect]
     Active Substance: ALBUTEROL
     Indication: PRODUCT USED FOR UNKNOWN INDICATION
     Dosage: UNK
  2. BREO ELLIPTA [Suspect]
     Active Substance: FLUTICASONE FUROATE\VILANTEROL TRIFENATATE
     Indication: PRODUCT USED FOR UNKNOWN INDICATION
     Dosage: UNK
     Route: 055
     Dates: start: 201911, end: 201912
  3. PRIMIDONE. [Concomitant]
     Active Substance: PRIMIDONE
     Indication: ESSENTIAL TREMOR
     Dosage: UNK
  4. ANORO ELLIPTA [Interacting]
     Active Substance: UMECLIDINIUM BROMIDE\VILANTEROL TRIFENATATE
     Indication: ASTHMA
     Dosage: UNK
  5. METOPROLOL. [Interacting]
     Active Substance: METOPROLOL
     Indication: HYPERTENSION
  6. METOPROLOL. [Interacting]
     Active Substance: METOPROLOL
     Indication: ATRIAL FIBRILLATION
  7. METOPROLOL. [Interacting]
     Active Substance: METOPROLOL
     Indication: HEART RATE IRREGULAR
     Dosage: 25 MG

REACTIONS (24)
  - Urinary retention [Unknown]
  - Heart rate increased [Unknown]
  - Cough [Unknown]
  - Dyspnoea [Unknown]
  - Hypoaesthesia [Unknown]
  - Atrial fibrillation [Unknown]
  - Kyphosis [Unknown]
  - Myalgia [Unknown]
  - Drug interaction [Unknown]
  - Complex regional pain syndrome [Unknown]
  - Cataract [Unknown]
  - Eye disorder [Unknown]
  - Ill-defined disorder [Unknown]
  - Complication associated with device [Unknown]
  - Retinal disorder [Unknown]
  - Neck pain [Unknown]
  - Bronchospasm [Unknown]
  - Lordosis [Unknown]
  - Limb discomfort [Unknown]
  - Candida infection [Recovered/Resolved]
  - Product use in unapproved indication [Unknown]
  - Off label use [Unknown]
  - Glaucoma [Unknown]
  - Scoliosis [Unknown]
